FAERS Safety Report 17519431 (Version 1)
Quarter: 2020Q1

REPORT INFORMATION
  Report Type: Spontaneous
  Country: US (occurrence: US)
  Receive Date: 20200310
  Receipt Date: 20200310
  Transmission Date: 20200409
  Serious: No
  Sender: FDA-Public Use
  Company Number: US-ALLERGAN-1940029US

PATIENT
  Age: 73 Year
  Sex: Female

DRUGS (3)
  1. BLOOD PRESSURE MED [Concomitant]
     Indication: BLOOD PRESSURE ABNORMAL
  2. ALLEGRA [Concomitant]
     Active Substance: FEXOFENADINE HYDROCHLORIDE
     Indication: SINUS DISORDER
     Dosage: UNK, PRN
  3. ESTRACE [Suspect]
     Active Substance: ESTRADIOL
     Indication: DYSPAREUNIA
     Dosage: 0.25 MG, QHS
     Route: 067
     Dates: start: 20190917, end: 20190921

REACTIONS (6)
  - Vulvovaginal inflammation [Recovering/Resolving]
  - Swelling [Recovering/Resolving]
  - Vulvovaginal burning sensation [Recovering/Resolving]
  - Vulvovaginal pain [Recovering/Resolving]
  - Adverse event [Recovering/Resolving]
  - Off label use [Unknown]

NARRATIVE: CASE EVENT DATE: 201909
